FAERS Safety Report 4579164-5 (Version None)
Quarter: 2005Q1

REPORT INFORMATION
  Report Type: 
  Country: None (occurrence: None)
  Receive Date: 20050208
  Receipt Date: 20050208
  Transmission Date: 20050727
  Serious: Yes (Hospitalization)
  Sender: FDA-Public Use
  Company Number: None

PATIENT
  Sex: Male
  Weight: 73 kg

DRUGS (9)
  1. VALGANCICLOVIR [Suspect]
     Dosage: 450 MG QOD
     Dates: start: 20040904
  2. PLACEBO [Suspect]
     Dosage: 450 MG QOD
     Dates: start: 20040904
  3. ACYCLOVIR [Concomitant]
  4. DAPSONE [Concomitant]
  5. CYCLOSPORINE [Concomitant]
  6. PROTONIX [Concomitant]
  7. METOPROLOL [Concomitant]
  8. DESFERAL [Concomitant]
  9. FLUCONAZOLE [Concomitant]

REACTIONS (3)
  - ABDOMINAL PAIN [None]
  - BLOOD PHOSPHORUS DECREASED [None]
  - CONSTIPATION [None]
